FAERS Safety Report 20091952 (Version 1)
Quarter: 2021Q4

REPORT INFORMATION
  Report Type: Spontaneous
  Country: DE (occurrence: DE)
  Receive Date: 20211119
  Receipt Date: 20211119
  Transmission Date: 20220303
  Serious: Yes (Hospitalization)
  Sender: FDA-Public Use
  Company Number: DE-ADRED-06955-01

PATIENT
  Age: 57 Year
  Sex: Female

DRUGS (6)
  1. CANDESARTAN [Suspect]
     Active Substance: CANDESARTAN
     Indication: Product used for unknown indication
     Dosage: 16 MG, 1-0-1-0, TABLETTEN
     Route: 048
  2. METFORMIN\SITAGLIPTIN [Suspect]
     Active Substance: METFORMIN\SITAGLIPTIN
     Indication: Product used for unknown indication
     Dosage: 1000|50 MG, 1-0-1-0, TABLETTEN
     Route: 048
  3. AMLODIPIN                          /00972401/ [Concomitant]
     Dosage: 5 MG, 1-0-0-0, TABLETTEN
     Route: 048
  4. METOPROLOL [Concomitant]
     Active Substance: METOPROLOL
     Dosage: 47.5 MG, 1-0-0-0, RETARD-TABLETTEN
     Route: 048
  5. ASPIRIN [Concomitant]
     Active Substance: ASPIRIN
     Dosage: 100 MG, 0-1-0-0, TABLETTEN
     Route: 048
  6. LEVOTHYROXINUM NATRICUM [Concomitant]
     Dosage: 100 ?G, 1-0-0-0, TABLETTEN
     Route: 048

REACTIONS (3)
  - Diarrhoea [Unknown]
  - Nausea [Unknown]
  - Vomiting [Unknown]
